FAERS Safety Report 8256226-2 (Version None)
Quarter: 2012Q1

REPORT INFORMATION
  Report Type: 
  Country: None (occurrence: None)
  Receive Date: 20120330
  Receipt Date: 20120320
  Transmission Date: 20120608
  Serious: Yes (Other)
  Sender: FDA-Public Use
  Company Number: AUR-APL-2012-01379

PATIENT
  Age: 65 Year
  Sex: Male
  Weight: 86 kg

DRUGS (9)
  1. TILIDIEM LA (DILATIAZEM HYDROCHLORIDE) [Concomitant]
  2. LEVEMIR [Concomitant]
  3. SIMVASTATIN [Suspect]
     Indication: BLOOD CHOLESTEROL INCREASED
     Dosage: 1 DOSAGE FORMS (1 DOSAGE FORMS, 1 IN 1 D) ORAL
     Route: 048
     Dates: start: 20111212, end: 20120203
  4. NOVOLOG [Concomitant]
  5. CLOPIDOGREL [Concomitant]
  6. LEVOTHYROXINE SODIUM [Concomitant]
  7. NICORANDIL (INICORANDIL) [Concomitant]
  8. ISOSORBIDE MONONITRATE [Concomitant]
  9. OMEPRAZOLE [Concomitant]

REACTIONS (1)
  - PAIN IN EXTREMITY [None]
